FAERS Safety Report 6985641-X (Version None)
Quarter: 2010Q3

REPORT INFORMATION
  Report Type: 
  Country: None (occurrence: None)
  Receive Date: 20100915
  Receipt Date: 20100906
  Transmission Date: 20110219
  Serious: Yes (Other)
  Sender: FDA-Public Use
  Company Number: GXKR2010SE10123

PATIENT
  Age: 59 Year
  Sex: Female
  Weight: 50 kg

DRUGS (27)
  1. PHENYTOIN SODIUM (NGX) [Interacting]
     Indication: CONVULSION
     Dosage: 700 MG, QD
     Route: 048
     Dates: start: 20000101
  2. PHENYTOIN SODIUM (NGX) [Interacting]
     Dosage: 600 MG, QD
     Dates: start: 20080101
  3. FLUCONAZOLE [Suspect]
     Indication: ORAL CANDIDIASIS
     Dosage: 50 MG, QD
     Dates: start: 20000101, end: 20000101
  4. FLUCONAZOLE [Interacting]
     Dosage: 400 MG, QD
     Dates: start: 20080101, end: 20080101
  5. CYCLOSPORINE [Concomitant]
  6. SULFASALAZINE [Concomitant]
  7. AZATHIOPRINE [Concomitant]
  8. METHOTREXATE [Concomitant]
  9. CYCLOPHOSPHAMIDE [Concomitant]
  10. INFLIXIMAB [Concomitant]
  11. ETANERCEPT [Concomitant]
  12. ALFACALCIDOL [Concomitant]
  13. AMPICILLIN SODIUM [Concomitant]
  14. AMOXICILLIN [Concomitant]
  15. CALCIUM CARBONATE [Concomitant]
  16. CLONIDINE [Concomitant]
  17. CITALOPRAM HYDROBROMIDE [Concomitant]
  18. FRUSEMIDE [Concomitant]
  19. CLONAZEPAM [Concomitant]
  20. ZOPICLONE [Concomitant]
  21. POTASSIUM [Concomitant]
  22. LOPERAMIDE [Concomitant]
  23. METHADONE [Concomitant]
  24. GABAPENTIN [Concomitant]
  25. PANTOPRAZOLE [Concomitant]
  26. METOCLOPRAMIDE [Concomitant]
  27. PROPIOMAZINE [Concomitant]

REACTIONS (8)
  - ALTERED STATE OF CONSCIOUSNESS [None]
  - ATAXIA [None]
  - CONFUSIONAL STATE [None]
  - DRUG INTERACTION [None]
  - FATIGUE [None]
  - GAIT DISTURBANCE [None]
  - SPEECH DISORDER [None]
  - VERTIGO [None]
